FAERS Safety Report 14470897 (Version 1)
Quarter: 2018Q1

REPORT INFORMATION
  Report Type: Spontaneous
  Country: US (occurrence: US)
  Receive Date: 20180130
  Receipt Date: 20180130
  Transmission Date: 20180509
  Serious: No
  Sender: FDA-Public Use
  Company Number: None

PATIENT
  Sex: Female
  Weight: 57.6 kg

DRUGS (4)
  1. RECLAST [Suspect]
     Active Substance: ZOLEDRONIC ACID
     Indication: OSTEOPOROSIS POSTMENOPAUSAL
     Dosage: QUANTITY:1 5 MG IV;OTHER FREQUENCY:1 TIME YEARLY;OTHER ROUTE:IV?
     Route: 042
     Dates: start: 20171226, end: 20171226
  2. LISINOPRIL/HCTZ [Concomitant]
     Active Substance: HYDROCHLOROTHIAZIDE\LISINOPRIL
  3. CINNAMON. [Concomitant]
     Active Substance: CINNAMON
  4. HUMALOG [Concomitant]
     Active Substance: INSULIN LISPRO

REACTIONS (2)
  - Bone pain [None]
  - Iridocyclitis [None]

NARRATIVE: CASE EVENT DATE: 20180130
